FAERS Safety Report 5606902-2 (Version None)
Quarter: 2008Q1

REPORT INFORMATION
  Report Type: 
  Country: None (occurrence: None)
  Receive Date: 20080125
  Receipt Date: 20080110
  Transmission Date: 20080703
  Serious: Yes (Hospitalization)
  Sender: FDA-Public Use
  Company Number: 8029078

PATIENT
  Age: 78 Year
  Sex: Male

DRUGS (4)
  1. KEPPRA [Suspect]
     Indication: TRAUMATIC BRAIN INJURY
     Dosage: IV
     Route: 042
     Dates: start: 20080108
  2. ZYPREXA [Concomitant]
  3. NAMENDA [Concomitant]
  4. ARICEPT [Concomitant]

REACTIONS (5)
  - APHAGIA [None]
  - FATIGUE [None]
  - MIOSIS [None]
  - SOMNOLENCE [None]
  - TREMOR [None]
